FAERS Safety Report 5476605-6 (Version None)
Quarter: 2007Q4

REPORT INFORMATION
  Report Type: 
  Country: None (occurrence: None)
  Receive Date: 20071004
  Receipt Date: 20070928
  Transmission Date: 20080405
  Serious: Yes (Other)
  Sender: FDA-Public Use
  Company Number: PHEH2007US13018

PATIENT
  Sex: Female

DRUGS (2)
  1. DIURETICS [Suspect]
     Dosage: UNK, UNK
  2. DIOVAN [Suspect]
     Dosage: 320MG, UNK

REACTIONS (4)
  - BACK PAIN [None]
  - OEDEMA PERIPHERAL [None]
  - PAIN IN EXTREMITY [None]
  - RENAL DISORDER [None]
